FAERS Safety Report 24836638 (Version 1)
Quarter: 2025Q1

REPORT INFORMATION
  Report Type: Spontaneous
  Country: CN (occurrence: CN)
  Receive Date: 20250113
  Receipt Date: 20250113
  Transmission Date: 20250408
  Serious: Yes (Life-Threatening, Hospitalization, Other)
  Sender: TERSERA THERAPEUTICS
  Company Number: CN-ASTRAZENECA-202501CHN005755CN

PATIENT

DRUGS (3)
  1. GOSERELIN [Suspect]
     Active Substance: GOSERELIN
     Indication: Metastases to bone
     Route: 059
     Dates: start: 20241115, end: 20241115
  2. ZOLADEX [Suspect]
     Active Substance: GOSERELIN ACETATE
     Indication: Metastases to bone
     Route: 065
  3. FULVESTRANT [Suspect]
     Active Substance: FULVESTRANT
     Indication: Metastases to bone
     Route: 030
     Dates: start: 20241115, end: 20241115

REACTIONS (1)
  - Myelosuppression [Recovering/Resolving]

NARRATIVE: CASE EVENT DATE: 20241213
